FAERS Safety Report 7465203-0 (Version None)
Quarter: 2011Q2

REPORT INFORMATION
  Report Type: 
  Country: None (occurrence: None)
  Receive Date: 20110509
  Receipt Date: 20110425
  Transmission Date: 20111010
  Serious: Yes (Hospitalization)
  Sender: FDA-Public Use
  Company Number: PHHY2011JP24401

PATIENT
  Sex: Female
  Weight: 55 kg

DRUGS (4)
  1. HERCEPTIN [Suspect]
     Indication: ADJUVANT THERAPY
     Dosage: 6 MG/KG, EVERY THREE WEEKS
     Route: 041
     Dates: start: 20101005
  2. HERCEPTIN [Suspect]
     Dosage: 6 MG EVERY 3 WEEKS
     Dates: start: 20101026, end: 20110208
  3. FEMARA [Suspect]
     Indication: BREAST CANCER
     Dosage: 2.5 MG, DAILY
     Route: 048
     Dates: start: 20100813, end: 20110201
  4. FEMARA [Suspect]
     Dosage: 2.5 MG, DAILY
     Route: 048
     Dates: start: 20110412

REACTIONS (8)
  - PYREXIA [None]
  - PRODUCTIVE COUGH [None]
  - COUGH [None]
  - BLOOD LACTATE DEHYDROGENASE INCREASED [None]
  - C-REACTIVE PROTEIN INCREASED [None]
  - CHEST X-RAY ABNORMAL [None]
  - WHITE BLOOD CELL COUNT INCREASED [None]
  - PNEUMONIA [None]
